FAERS Safety Report 7936225-8 (Version None)
Quarter: 2011Q4

REPORT INFORMATION
  Report Type: 
  Country: None (occurrence: None)
  Receive Date: 20111121
  Receipt Date: 20111114
  Transmission Date: 20120403
  Serious: Yes (Congenital Anomaly, Other)
  Sender: FDA-Public Use
  Company Number: AUR-APL-2011-05435

PATIENT
  Sex: Female

DRUGS (6)
  1. TORSEMIDE [Suspect]
     Indication: GLOMERULONEPHRITIS MEMBRANOUS
     Dosage: (10 MG,1 D),TRANSPLACENTAL
     Route: 064
     Dates: start: 20101031, end: 20110126
  2. RAMIPRIL [Suspect]
     Indication: GLOMERULONEPHRITIS MEMBRANOUS
     Dosage: (5 MG,1 D),TRANSPLACENTAL
     Route: 064
     Dates: start: 20101031, end: 20110126
  3. ENOXAPARIN SODIUM [Concomitant]
  4. CYCLOSPORINE [Suspect]
     Indication: GLOMERULONEPHRITIS MEMBRANOUS
     Dosage: 300 MG (150 MG,2 IN 1 D),TRANSPLACENTAL
     Route: 064
     Dates: start: 20091031, end: 20110131
  5. PREDNISOLONE [Concomitant]
  6. FALITHROM (PHENPROCOUMON) [Suspect]
     Indication: PULMONARY EMBOLISM
     Dosage: 6 MG (3 MG,2 IN 1 D),TRANSPLACENTAL
     Route: 064
     Dates: start: 20091031, end: 20110113

REACTIONS (6)
  - ABORTION INDUCED [None]
  - DOUBLE OUTLET RIGHT VENTRICLE [None]
  - FALLOT'S TETRALOGY [None]
  - TRICUSPID VALVE INCOMPETENCE [None]
  - SINGLE UMBILICAL ARTERY [None]
  - MATERNAL DRUGS AFFECTING FOETUS [None]
